FAERS Safety Report 6561919-9 (Version None)
Quarter: 2010Q1

REPORT INFORMATION
  Report Type: 
  Country: None (occurrence: None)
  Receive Date: 20100130
  Receipt Date: 20091125
  Transmission Date: 20100710
  Serious: No
  Sender: FDA-Public Use
  Company Number: US-ABBOTT-09P-163-0576835-00

PATIENT
  Sex: Female
  Weight: 56.296 kg

DRUGS (6)
  1. HUMIRA [Suspect]
     Indication: RHEUMATOID ARTHRITIS
     Dates: start: 20090430, end: 20090528
  2. PREDNISONE [Concomitant]
     Indication: DRUG USE FOR UNKNOWN INDICATION
     Dosage: LOW DOSE
     Route: 048
  3. SYNTHROID [Concomitant]
     Indication: DRUG USE FOR UNKNOWN INDICATION
     Dates: end: 20090528
  4. UNKNOWN MEDICATION [Concomitant]
     Indication: DIABETES MELLITUS
     Route: 048
  5. UNKNOWN DIABETES MEDICATION [Concomitant]
     Indication: DIABETES MELLITUS
     Dates: end: 20090528
  6. METHOTREXATE [Concomitant]
     Indication: DRUG USE FOR UNKNOWN INDICATION
     Dates: end: 20090528

REACTIONS (7)
  - ALOPECIA [None]
  - ALOPECIA TOTALIS [None]
  - ERYTHEMA [None]
  - HYPERAESTHESIA [None]
  - INJECTION SITE PAIN [None]
  - RASH PRURITIC [None]
  - VERTIGO [None]
